FAERS Safety Report 4870769-0 (Version None)
Quarter: 2006Q1

REPORT INFORMATION
  Report Type: 
  Country: None (occurrence: None)
  Receive Date: 20060103
  Receipt Date: 20050928
  Transmission Date: 20060701
  Serious: Yes (Hospitalization, Other)
  Sender: FDA-Public Use
  Company Number: US-MERCK-0509USA04347

PATIENT
  Age: 57 Year
  Sex: Female
  Weight: 91 kg

DRUGS (7)
  1. VIOXX [Suspect]
     Indication: OSTEOARTHRITIS
     Route: 048
     Dates: start: 19990901, end: 20030720
  2. VIOXX [Suspect]
     Route: 048
     Dates: start: 19990901, end: 20030720
  3. PREMARIN [Concomitant]
     Route: 065
  4. ASPIRIN [Concomitant]
     Route: 065
  5. ZOCOR [Concomitant]
     Route: 048
  6. WELLBUTRIN [Concomitant]
     Route: 065
  7. ZYPREXA [Concomitant]
     Route: 065

REACTIONS (25)
  - ANAEMIA POSTOPERATIVE [None]
  - ARTERIOSCLEROSIS CORONARY ARTERY [None]
  - ARTHROPATHY [None]
  - BLOOD PRESSURE FLUCTUATION [None]
  - CARDIAC FAILURE CONGESTIVE [None]
  - CEREBROVASCULAR ACCIDENT [None]
  - CHOREOATHETOSIS [None]
  - CORONARY ARTERY DISEASE [None]
  - CORONARY ARTERY STENOSIS [None]
  - DIARRHOEA [None]
  - DIVERTICULUM [None]
  - DYSLIPIDAEMIA [None]
  - EPIGASTRIC DISCOMFORT [None]
  - GASTROINTESTINAL DISORDER POSTOPERATIVE [None]
  - HAEMATOCRIT DECREASED [None]
  - HAEMOGLOBIN DECREASED [None]
  - HALLUCINATION, AUDITORY [None]
  - HYPERLIPIDAEMIA [None]
  - HYPERTENSION [None]
  - HYPOKINESIA [None]
  - HYPOVOLAEMIA [None]
  - ISCHAEMIC STROKE [None]
  - MYOCARDIAL INFARCTION [None]
  - NERVOUSNESS [None]
  - SLEEP DISORDER [None]
